FAERS Safety Report 15879674 (Version 2)
Quarter: 2019Q2

REPORT INFORMATION
  Report Type: Report from Study
  Country: US (occurrence: US)
  Receive Date: 20190128
  Receipt Date: 20190626
  Transmission Date: 20190711
  Serious: Yes (Other)
  Sender: FDA-Public Use
  Company Number: PHEH2019US003286

PATIENT
  Sex: Female

DRUGS (1)
  1. ENTRESTO [Suspect]
     Active Substance: SACUBITRIL\VALSARTAN
     Indication: CARDIAC FAILURE
     Dosage: 200 MG(97MG SACUBITRIL /103MGVALSARTAN), BID
     Route: 048

REACTIONS (8)
  - Chest pain [Unknown]
  - Glaucoma [Unknown]
  - Peripheral swelling [Unknown]
  - Costochondritis [Unknown]
  - Pain in extremity [Unknown]
  - Ejection fraction decreased [Unknown]
  - Vision blurred [Recovered/Resolved]
  - Hypertension [Recovered/Resolved]
